FAERS Safety Report 25118524 (Version 2)
Quarter: 2025Q2

REPORT INFORMATION
  Report Type: Spontaneous
  Country: US (occurrence: US)
  Receive Date: 20250325
  Receipt Date: 20250429
  Transmission Date: 20250717
  Serious: No
  Sender: ABBVIE
  Company Number: US-ABBVIE-6194901

PATIENT
  Age: 35 Year
  Sex: Female

DRUGS (2)
  1. BOTOX [Suspect]
     Active Substance: ONABOTULINUMTOXINA
     Indication: Product used for unknown indication
     Route: 065
  2. UPNEEQ [Suspect]
     Active Substance: OXYMETAZOLINE HYDROCHLORIDE
     Indication: Eyelid ptosis
     Dosage: 1 GTT - 1 DROP
     Route: 047
     Dates: start: 20250318, end: 20250318

REACTIONS (1)
  - Ocular discomfort [Unknown]

NARRATIVE: CASE EVENT DATE: 20250318
